FAERS Safety Report 10235695 (Version 1)
Quarter: 2014Q2

REPORT INFORMATION
  Report Type: Spontaneous
  Country: US (occurrence: US)
  Receive Date: 20140613
  Receipt Date: 20140613
  Transmission Date: 20141212
  Serious: Yes (Hospitalization)
  Sender: FDA-Public Use
  Company Number: US-B.I. PHARMACEUTICALS,INC./RIDGEFIELD-2014-BI-25988BP

PATIENT
  Sex: Female

DRUGS (2)
  1. COMBIVENT [Suspect]
     Indication: ASTHMA
     Dosage: STRENGTH: 20 MCG / 100 MCG; DAILY DOSE: 40 MCG/ 400 MCG
     Route: 055
     Dates: start: 2012
  2. PROAIR [Concomitant]
     Route: 055

REACTIONS (3)
  - Bronchitis [Recovered/Resolved]
  - Middle ear effusion [Not Recovered/Not Resolved]
  - Off label use [Unknown]
